FAERS Safety Report 5355487-7 (Version None)
Quarter: 2007Q2

REPORT INFORMATION
  Report Type: 
  Country: None (occurrence: None)
  Receive Date: 20070612
  Receipt Date: 20070612
  Transmission Date: 20071010
  Serious: No
  Sender: FDA-Public Use
  Company Number: None

PATIENT
  Age: 41 Year
  Sex: Female

DRUGS (2)
  1. CORTISPORIN [Suspect]
     Dosage: SUSPENSION
  2. CORTISPORIN [Suspect]
     Dosage: SUSPENSION

REACTIONS (4)
  - DRUG DISPENSING ERROR [None]
  - EYE PAIN [None]
  - STRESS [None]
  - WRONG DRUG ADMINISTERED [None]
